FAERS Safety Report 9660221 (Version 1)
Quarter: 2013Q4

REPORT INFORMATION
  Report Type: Spontaneous
  Country: US (occurrence: US)
  Receive Date: 20131031
  Receipt Date: 20131031
  Transmission Date: 20140711
  Serious: Yes (Death, Other)
  Sender: FDA-Public Use
  Company Number: US-NAPPMUNDI-USA-2011-0067772

PATIENT
  Age: 25 Year
  Sex: Female

DRUGS (2)
  1. OXYCODONE HYDROCHLORIDE (SIMILAR TO NDA 20-553) [Suspect]
     Indication: PRODUCT USED FOR UNKNOWN INDICATION
  2. COCAINE [Suspect]
     Indication: DRUG ABUSE

REACTIONS (5)
  - Overdose [Fatal]
  - Substance abuse [Fatal]
  - Renal failure [Fatal]
  - Cardiac arrest [Fatal]
  - Respiratory failure [Fatal]
